FAERS Safety Report 6441726-8 (Version None)
Quarter: 2009Q4

REPORT INFORMATION
  Report Type: 
  Country: None (occurrence: None)
  Receive Date: 20091116
  Receipt Date: 20091103
  Transmission Date: 20100525
  Serious: Yes (Hospitalization, Other)
  Sender: FDA-Public Use
  Company Number: AU-SANOFI-AVENTIS-200922025GDDC

PATIENT
  Age: 64 Year
  Sex: Female

DRUGS (3)
  1. INSULIN GLARGINE [Suspect]
     Indication: DIABETES MELLITUS
     Route: 058
     Dates: start: 20061001
  2. AUTOPEN 24 [Suspect]
     Indication: DIABETES MELLITUS
  3. HUMALOG [Concomitant]

REACTIONS (1)
  - MYOCARDIAL INFARCTION [None]
